FAERS Safety Report 16940259 (Version 1)
Quarter: 2019Q4

REPORT INFORMATION
  Report Type: Spontaneous
  Country: US (occurrence: US)
  Receive Date: 20190827
  Receipt Date: 20190827
  Transmission Date: 20200122
  Serious: Yes (Death, Hospitalization)
  Sender: FDA-Public Use
  Company Number: None

PATIENT
  Age: 32 Month
  Sex: Male
  Weight: 11.4 kg

DRUGS (5)
  1. ZINECARD [Suspect]
     Active Substance: DEXRAZOXANE HYDROCHLORIDE
     Dates: end: 20190807
  2. VINCRISTINE SULFATE. [Suspect]
     Active Substance: VINCRISTINE SULFATE
     Dates: end: 20190814
  3. 5-FLUOROURACIL [Suspect]
     Active Substance: FLUOROURACIL
     Dates: end: 20190807
  4. DOXORUBICIN HYDROCHLORIDE. [Suspect]
     Active Substance: DOXORUBICIN HYDROCHLORIDE
     Dates: end: 20190808
  5. CISPLATIN. [Suspect]
     Active Substance: CISPLATIN
     Dates: end: 20190807

REACTIONS (20)
  - Hypotension [None]
  - Hypoxia [None]
  - Abdominal discomfort [None]
  - Tumour haemorrhage [None]
  - Hepatic haemorrhage [None]
  - Pulseless electrical activity [None]
  - Cardiac arrest [None]
  - Acute kidney injury [None]
  - Nephropathy toxic [None]
  - Abdominal distension [None]
  - Toxicity to various agents [None]
  - Rash [None]
  - Haemoglobin decreased [None]
  - Transfusion [None]
  - Fluid overload [None]
  - Renal replacement therapy [None]
  - Haemodynamic instability [None]
  - Lactic acidosis [None]
  - Coagulopathy [None]
  - Inferior vena caval occlusion [None]

NARRATIVE: CASE EVENT DATE: 20190816
